FAERS Safety Report 16097192 (Version 2)
Quarter: 2019Q2

REPORT INFORMATION
  Report Type: Spontaneous
  Country: DE (occurrence: DE)
  Receive Date: 20190320
  Receipt Date: 20190404
  Transmission Date: 20190711
  Serious: Yes (Hospitalization, Other)
  Sender: FDA-Public Use
  Company Number: DE-BRISTOL-MYERS SQUIBB COMPANY-BMS-2019-025990

PATIENT
  Age: 83 Year
  Sex: Male
  Weight: 85 kg

DRUGS (3)
  1. ELIQUIS [Suspect]
     Active Substance: APIXABAN
     Indication: CEREBROVASCULAR ACCIDENT PROPHYLAXIS
     Dosage: 5 MILLIGRAM, BID
     Route: 065
     Dates: start: 201406, end: 201510
  2. PRAVASTATIN. [Concomitant]
     Active Substance: PRAVASTATIN
     Indication: PRODUCT USED FOR UNKNOWN INDICATION
     Dosage: 40 ONE DOSAGE FORM IN THE EVENING
     Route: 065
  3. FUROSEMIDE                         /00032602/ [Concomitant]
     Active Substance: FUROSEMIDE
     Indication: PRODUCT USED FOR UNKNOWN INDICATION
     Dosage: 40 HALF A DOSAGE FORM IN THE MORNING
     Route: 065

REACTIONS (3)
  - Iliac artery occlusion [Recovered/Resolved]
  - Aortic aneurysm [Recovered/Resolved]
  - Aortic occlusion [Recovered/Resolved]

NARRATIVE: CASE EVENT DATE: 20161013
